FAERS Safety Report 18435620 (Version 1)
Quarter: 2020Q4

REPORT INFORMATION
  Report Type: Spontaneous
  Country: US (occurrence: US)
  Receive Date: 20201028
  Receipt Date: 20201028
  Transmission Date: 20210114
  Serious: Yes (Other)
  Sender: FDA-Public Use
  Company Number: US-BAYER-2020-232205

PATIENT
  Age: 65 Year
  Sex: Female

DRUGS (3)
  1. KYLEENA [Suspect]
     Active Substance: LEVONORGESTREL
     Indication: VAGINAL HAEMORRHAGE
  2. KYLEENA [Suspect]
     Active Substance: LEVONORGESTREL
     Indication: CONTRACEPTION
     Dosage: 17.5  ?G PER DAY CONTINUOUSLY
     Route: 015
     Dates: start: 202003
  3. KYLEENA [Suspect]
     Active Substance: LEVONORGESTREL
     Indication: UTERINE HAEMORRHAGE

REACTIONS (1)
  - Genital haemorrhage [None]

NARRATIVE: CASE EVENT DATE: 202003
